FAERS Safety Report 10051040 (Version 1)
Quarter: 2014Q2

REPORT INFORMATION
  Report Type: Spontaneous
  Country: US (occurrence: US)
  Receive Date: 20140401
  Receipt Date: 20140401
  Transmission Date: 20141212
  Serious: No
  Sender: FDA-Public Use
  Company Number: US-BAYER-2014-048071

PATIENT
  Age: 64 Year
  Sex: Female
  Weight: 52.15 kg

DRUGS (1)
  1. ESTRADIOL HEMIHYDRATE (PATCH) [Suspect]
     Indication: MENOPAUSAL SYMPTOMS
     Dosage: 1 DF, OW
     Route: 062

REACTIONS (5)
  - Hot flush [Not Recovered/Not Resolved]
  - Discomfort [Not Recovered/Not Resolved]
  - Irritability [Not Recovered/Not Resolved]
  - Feeling abnormal [Not Recovered/Not Resolved]
  - Incorrect dose administered [None]
